FAERS Safety Report 13486383 (Version 3)
Quarter: 2017Q2

REPORT INFORMATION
  Report Type: Spontaneous
  Country: US (occurrence: US)
  Receive Date: 20170426
  Receipt Date: 20170622
  Transmission Date: 20170830
  Serious: Yes (Hospitalization)
  Sender: FDA-Public Use
  Company Number: US-OTSUKA-2017_009210

PATIENT
  Sex: Female

DRUGS (1)
  1. ABILIFY MAINTENA [Suspect]
     Active Substance: ARIPIPRAZOLE
     Indication: SCHIZOPHRENIA
     Dosage: 400 MG, UNK (ONE TIME DOSE)
     Route: 065
     Dates: start: 2017, end: 2017

REACTIONS (2)
  - Psychotic disorder [Not Recovered/Not Resolved]
  - Hospitalisation [Unknown]
